FAERS Safety Report 8334277 (Version 5)
Quarter: 2014Q2

REPORT INFORMATION
  Report Type: Spontaneous
  Country: US (occurrence: US)
  Receive Date: 20120112
  Receipt Date: 20140516
  Transmission Date: 20141212
  Serious: Yes (Other)
  Sender: FDA-Public Use
  Company Number: US-PFIZER INC-2012006980

PATIENT
  Sex: Male

DRUGS (5)
  1. LIPITOR [Suspect]
     Dosage: UNK
     Route: 048
  2. ALDACTONE [Suspect]
     Dosage: UNK
  3. NITROSTAT [Suspect]
     Dosage: UNK
  4. PROTONIX [Suspect]
     Dosage: UNK
  5. NORVASC [Suspect]
     Dosage: UNK

REACTIONS (7)
  - Postoperative thoracic procedure complication [Unknown]
  - Cardiac disorder [Unknown]
  - Chest discomfort [Unknown]
  - Hypertension [Unknown]
  - Abdominal distension [Unknown]
  - Gastrointestinal pain [Unknown]
  - Chest pain [Unknown]
